FAERS Safety Report 5023802-X (Version None)
Quarter: 2006Q2

REPORT INFORMATION
  Report Type: 
  Country: None (occurrence: None)
  Receive Date: 20060606
  Receipt Date: 20060522
  Transmission Date: 20061013
  Serious: Yes (Death, Other)
  Sender: FDA-Public Use
  Company Number: 2006AL000809

PATIENT
  Age: 80 Year
  Sex: Male

DRUGS (5)
  1. CONSTULOSE [Suspect]
     Indication: CONSTIPATION
     Dosage: QD; PO
     Route: 048
     Dates: end: 20060408
  2. ZELNORM [Concomitant]
  3. MILK OF MAGNESIA TAB [Concomitant]
  4. WARFARIN SODIUM [Concomitant]
  5. ANTIBIOTICS [Concomitant]

REACTIONS (4)
  - CHEST INJURY [None]
  - COMPLETED SUICIDE [None]
  - DIARRHOEA [None]
  - GUN SHOT WOUND [None]
